FAERS Safety Report 8154768-1 (Version None)
Quarter: 2012Q1

REPORT INFORMATION
  Report Type: 
  Country: None (occurrence: None)
  Receive Date: 20120221
  Receipt Date: 20120210
  Transmission Date: 20120608
  Serious: Yes (Life-Threatening, Other)
  Sender: FDA-Public Use
  Company Number: PHFR2012GB001113

PATIENT
  Sex: Male

DRUGS (3)
  1. MIDAZOLAM [Concomitant]
  2. TEGRETOL [Suspect]
     Indication: CONVULSION
     Dosage: 200 MG, BID
  3. TEGRETOL-XR [Suspect]
     Dosage: 200 MG, BID

REACTIONS (3)
  - COMPLEX PARTIAL SEIZURES [None]
  - GENERAL PHYSICAL CONDITION ABNORMAL [None]
  - DYSPNOEA [None]
